FAERS Safety Report 9893288 (Version 2)
Quarter: 2014Q1

REPORT INFORMATION
  Report Type: Spontaneous
  Country: FR (occurrence: FR)
  Receive Date: 20140213
  Receipt Date: 20140213
  Transmission Date: 20141002
  Serious: Yes (Other)
  Sender: FDA-Public Use
  Company Number: FR-ABBVIE-13P-056-1182861-00

PATIENT
  Age: 47 Year
  Sex: Male
  Weight: 114 kg

DRUGS (6)
  1. NORVIR [Suspect]
     Indication: HIV INFECTION
     Dates: start: 20070925
  2. APTIVUS [Suspect]
     Indication: PRODUCT USED FOR UNKNOWN INDICATION
  3. VIDEX [Suspect]
     Indication: PRODUCT USED FOR UNKNOWN INDICATION
  4. VIREAD [Suspect]
     Indication: PRODUCT USED FOR UNKNOWN INDICATION
  5. RALTEGRAVIR [Suspect]
     Indication: PRODUCT USED FOR UNKNOWN INDICATION
  6. TIPRANAVIR [Concomitant]
     Indication: PRODUCT USED FOR UNKNOWN INDICATION

REACTIONS (3)
  - Loose tooth [Not Recovered/Not Resolved]
  - Tooth loss [Unknown]
  - Dental caries [Not Recovered/Not Resolved]
